FAERS Safety Report 24726932 (Version 1)
Quarter: 2024Q4

REPORT INFORMATION
  Report Type: Report from Study
  Country: BR (occurrence: BR)
  Receive Date: 20241212
  Receipt Date: 20241212
  Transmission Date: 20250115
  Serious: Yes (Hospitalization)
  Sender: BIOGEN
  Company Number: BR-BIOGEN-2024BI01293113

PATIENT
  Sex: Female
  Weight: 78 kg

DRUGS (1)
  1. TYSABRI [Suspect]
     Active Substance: NATALIZUMAB
     Indication: Multiple sclerosis
     Dosage: DILUTE 1 VIAL IN 100ML OF SALINE SOLUTION 0.9% INFUSE THE EV SOLUTION INTO BIC IN 1 HOUR. REMAIN ...
     Route: 050
     Dates: start: 202310

REACTIONS (1)
  - Visual impairment [Unknown]
